FAERS Safety Report 4585454-2 (Version None)
Quarter: 2005Q1

REPORT INFORMATION
  Report Type: 
  Country: None (occurrence: None)
  Receive Date: 20050217
  Receipt Date: 20041115
  Transmission Date: 20050727
  Serious: Yes (Hospitalization)
  Sender: FDA-Public Use
  Company Number: FRWYE202415NOV04

PATIENT
  Age: 52 Year
  Sex: Male

DRUGS (7)
  1. ENBREL [Suspect]
     Indication: PSORIATIC ARTHROPATHY
     Dosage: UNKNOWN
     Route: 058
     Dates: start: 20040529, end: 20040902
  2. ENBREL [Suspect]
     Indication: ANKYLOSING SPONDYLITIS
  3. METHOTREXATE [Suspect]
     Indication: PSORIATIC ARTHROPATHY
     Dosage: UNKNOWN
     Route: 048
     Dates: start: 20040115
  4. METHOTREXATE [Suspect]
     Indication: ANKYLOSING SPONDYLITIS
  5. CORTICOSTEROID NOS [Suspect]
     Indication: PSORIATIC ARTHROPATHY
     Dosage: UNKNOWN
  6. CORTICOSTEROID NOS [Suspect]
     Indication: ANKYLOSING SPONDYLITIS
  7. IRBESARTAN [Concomitant]

REACTIONS (3)
  - CONDITION AGGRAVATED [None]
  - ECHINOCOCCIASIS [None]
  - MYOCARDIAL ISCHAEMIA [None]
